FAERS Safety Report 8773914 (Version 1)
Quarter: 2012Q4

REPORT INFORMATION
  Report Type: 
  Country: US (occurrence: US)
  Receive Date: 20120907
  Receipt Date: 20120907
  Transmission Date: 20130627
  Serious: No
  Sender: FDA-Public Use
  Company Number: US-PFIZER INC-2012218780

PATIENT
  Age: 74 Year
  Sex: Female

DRUGS (4)
  1. DETROL [Suspect]
     Indication: HYPERTONIC BLADDER
     Dosage: UNK
  2. DETROL LA [Suspect]
     Indication: HYPERTONIC BLADDER
     Dosage: UNK
  3. VESICARE [Suspect]
     Indication: HYPERTONIC BLADDER
     Dosage: 5 mg, UNK
  4. OXYBUTYNIN XL [Suspect]
     Indication: HYPERTONIC BLADDER
     Dosage: 10 mg, UNK

REACTIONS (2)
  - Drug effect decreased [Unknown]
  - Urinary incontinence [Unknown]
